FAERS Safety Report 7383019-0 (Version None)
Quarter: 2011Q1

REPORT INFORMATION
  Report Type: 
  Country: None (occurrence: None)
  Receive Date: 20110330
  Receipt Date: 20110324
  Transmission Date: 20110831
  Serious: Yes (Other)
  Sender: FDA-Public Use
  Company Number: US-PFIZER INC-2011006069

PATIENT
  Sex: Female

DRUGS (5)
  1. CHANTIX [Suspect]
     Indication: SMOKING CESSATION THERAPY
     Dosage: UNK
     Dates: start: 20071101, end: 20080201
  2. DOCUSATE SODIUM [Concomitant]
     Indication: ASTHMA
     Dosage: UNK
     Dates: start: 19910101
  3. PERCOCET [Concomitant]
     Indication: BACK PAIN
     Dosage: UNK
     Dates: start: 20020101
  4. ALBUTEROL [Concomitant]
     Indication: ASTHMA
     Dosage: UNK
     Dates: start: 19910101
  5. IPRATROPIUM [Concomitant]
     Indication: ASTHMA
     Dosage: UNK
     Dates: start: 19910101

REACTIONS (2)
  - ABDOMINAL DISCOMFORT [None]
  - SUICIDE ATTEMPT [None]
